FAERS Safety Report 7511142-6 (Version None)
Quarter: 2011Q2

REPORT INFORMATION
  Report Type: 
  Country: None (occurrence: None)
  Receive Date: 20110531
  Receipt Date: 20110518
  Transmission Date: 20111010
  Serious: Yes (Hospitalization, Other)
  Sender: FDA-Public Use
  Company Number: US-JNJFOC-20110310848

PATIENT
  Sex: Female

DRUGS (6)
  1. DURAGESIC-100 [Suspect]
     Dosage: NDC 50458-094-05
     Route: 062
     Dates: start: 20110101
  2. DILAUDID [Concomitant]
     Indication: PAIN
     Dosage: 2 MG ONE EVERY 4 HOURS
     Route: 048
  3. UNKNOWN MEDICATION [Concomitant]
     Indication: PAIN
     Route: 037
     Dates: start: 19980101
  4. DURAGESIC-100 [Suspect]
     Route: 062
     Dates: start: 20080101, end: 20090101
  5. DURAGESIC-100 [Suspect]
     Indication: MULTIPLE SCLEROSIS
     Route: 062
     Dates: start: 20030101, end: 20080101
  6. DURAGESIC-100 [Suspect]
     Route: 062
     Dates: start: 20090101, end: 20110101

REACTIONS (5)
  - UPPER LIMB FRACTURE [None]
  - FALL [None]
  - DRUG ADMINISTRATION ERROR [None]
  - ABNORMAL LOSS OF WEIGHT [None]
  - HIP FRACTURE [None]
